FAERS Safety Report 8599840-7 (Version None)
Quarter: 2012Q3

REPORT INFORMATION
  Report Type: 
  Country: None (occurrence: None)
  Receive Date: 20120816
  Receipt Date: 20120801
  Transmission Date: 20120928
  Serious: Yes (Hospitalization, Other)
  Sender: FDA-Public Use
  Company Number: JP-BAYER-2011-059000

PATIENT
  Age: 79 Year
  Sex: Male
  Weight: 56 kg

DRUGS (23)
  1. DIOVAN [Concomitant]
     Indication: BLOOD PRESSURE INCREASED
     Dosage: 80 MG, QD
     Route: 048
     Dates: start: 20080515
  2. HIRUDOID [Concomitant]
     Dosage: UNK
     Route: 061
     Dates: start: 20110122
  3. DOXAZOSIN MESYLATE [Concomitant]
     Indication: HYPERTENSION
     Dosage: DAILY DOSE 50 MG
     Route: 048
     Dates: start: 20090916
  4. TAGAMET [Concomitant]
     Dosage: DAILY DOSE 200 MG
     Route: 048
     Dates: start: 20080515
  5. DEPAS [Concomitant]
     Dosage: DAILY DOSE 1 MG
     Route: 048
     Dates: start: 20090916
  6. MAGLAX [Concomitant]
     Dosage: DAILY DOSE 990 MG
     Route: 048
     Dates: start: 20110125
  7. LASIX [Concomitant]
     Indication: BLOOD PRESSURE INCREASED
     Dosage: DAILY DOSE 20 MG
     Route: 048
     Dates: start: 20101213
  8. ACETYLOL [Concomitant]
     Dosage: UNK
     Route: 061
     Dates: start: 20110124
  9. CIBENOL [Concomitant]
     Dosage: DAILY DOSE 200 MG
     Route: 048
     Dates: start: 20080515
  10. ZOLPIDEM [Concomitant]
     Dosage: DAILY DOSE 5 MG
     Route: 048
     Dates: start: 20080515
  11. URINORM [Concomitant]
     Dosage: DAILY DOSE 50 MG
     Route: 048
     Dates: start: 20080515
  12. NEXAVAR [Suspect]
     Indication: HEPATIC NEOPLASM MALIGNANT
     Dosage: DAILY DOSE 400 MG
     Route: 048
     Dates: start: 20110120, end: 20110323
  13. ADALAT CC [Concomitant]
     Indication: HYPERTENSION
     Dosage: 20 MG, BID
     Route: 048
     Dates: start: 20080515
  14. DOXAZOSIN MESYLATE [Concomitant]
     Dosage: 1 MG, BID
     Route: 048
     Dates: start: 20110216, end: 20110718
  15. IRGAS [Concomitant]
     Dosage: DAILY DOSE 4 MG
     Route: 048
     Dates: start: 20080515
  16. GOREI-SAN [Concomitant]
     Dosage: DAILY DOSE 7.5 G
     Route: 048
     Dates: start: 20081216
  17. HYALEIN [Concomitant]
     Dosage: UNK
     Route: 047
     Dates: start: 20070910
  18. LOXONIN [Concomitant]
     Dosage: UNK
     Route: 062
     Dates: start: 20080515
  19. LASIX [Concomitant]
     Dosage: 10 MG, QD
     Route: 048
  20. LASIX [Concomitant]
     Dosage: 10 MG, QD
     Route: 048
  21. NEXAVAR [Suspect]
     Dosage: DAILY DOSE 200 MG
     Dates: start: 20110324, end: 20110707
  22. AZULENE-GLUTAMINE [Concomitant]
     Dosage: DAILY DOSE 1.5 G
     Route: 048
     Dates: start: 20080515
  23. CEPHADOL [Concomitant]
     Dosage: DAILY DOSE 50 MG
     Route: 048
     Dates: start: 20090916

REACTIONS (4)
  - PROTEINURIA [None]
  - NEPHROTIC SYNDROME [None]
  - HYPERTENSION [None]
  - HAEMORRHAGE SUBCUTANEOUS [None]
